FAERS Safety Report 21597994 (Version 1)
Quarter: 2022Q4

REPORT INFORMATION
  Report Type: Spontaneous
  Country: US (occurrence: None)
  Receive Date: 20221115
  Receipt Date: 20221115
  Transmission Date: 20230112
  Serious: No
  Sender: FDA-Public Use
  Company Number: 2022A350683

PATIENT
  Sex: Female

DRUGS (1)
  1. PULMICORT FLEXHALER [Suspect]
     Active Substance: BUDESONIDE
     Indication: Asthma
     Dosage: 180MCG 2 PUFFS TWICE A DAY
     Route: 055
     Dates: start: 20220913

REACTIONS (4)
  - Dyspnoea exertional [Unknown]
  - Tachycardia [Unknown]
  - Therapeutic product effect decreased [Unknown]
  - Device malfunction [Unknown]
